FAERS Safety Report 16426291 (Version 1)
Quarter: 2019Q2

REPORT INFORMATION
  Report Type: Spontaneous
  Country: IT (occurrence: IT)
  Receive Date: 20190613
  Receipt Date: 20190613
  Transmission Date: 20190711
  Serious: Yes (Other)
  Sender: FDA-Public Use
  Company Number: IT-JNJFOC-20190616822

PATIENT
  Sex: Male

DRUGS (3)
  1. DOXORUBICIN HYDROCHLORIDE. [Suspect]
     Active Substance: DOXORUBICIN HYDROCHLORIDE
     Indication: NEPHROBLASTOMA
     Route: 065
  2. ACTINOMYCIN D [Suspect]
     Active Substance: DACTINOMYCIN
     Indication: NEPHROBLASTOMA
     Route: 065
  3. VINCRISTINE SULFATE. [Suspect]
     Active Substance: VINCRISTINE SULFATE
     Indication: NEPHROBLASTOMA
     Route: 065

REACTIONS (3)
  - Product use in unapproved indication [Unknown]
  - Venoocclusive liver disease [Recovered/Resolved]
  - Off label use [Unknown]
